FAERS Safety Report 16886277 (Version 1)
Quarter: 2019Q4

REPORT INFORMATION
  Report Type: Spontaneous
  Country: US (occurrence: US)
  Receive Date: 20190809
  Receipt Date: 20190809
  Transmission Date: 20200122
  Serious: Yes (Other)
  Sender: FDA-Public Use
  Company Number: None

PATIENT
  Age: 50 Year
  Weight: 49.9 kg

DRUGS (6)
  1. VITAMIN B COMPLEX [Concomitant]
     Active Substance: CYANOCOBALAMIN\DEXPANTHENOL\NIACINAMIDE\PYRIDOXINE HYDROCHLORIDE\RIBOFLAVIN 5^-PHOSPHATE SODIUM\THIAMINE HYDROCHLORIDE\VITAMIN B COMPLEX
  2. ADVIL [Concomitant]
     Active Substance: IBUPROFEN
  3. IB GUARD [Concomitant]
  4. CVS HEALTH LUBRICANT EYE OINTMENT [MINERAL OIL\PETROLATUM] [Suspect]
     Active Substance: MINERAL OIL\PETROLATUM
     Indication: HORDEOLUM
     Dosage: ?          OTHER ROUTE:APPLIED TO LOWER EYE LID?
     Dates: start: 201906, end: 20190612
  5. ANTACID [Concomitant]
     Active Substance: ALUMINUM HYDROXIDE\CALCIUM CARBONATE\DIMETHICONE\MAGNESIUM HYDROXIDE
  6. LORAZEPAM. [Concomitant]
     Active Substance: LORAZEPAM

REACTIONS (1)
  - Eyelid infection [None]

NARRATIVE: CASE EVENT DATE: 20170609
